FAERS Safety Report 5107116-5 (Version None)
Quarter: 2006Q3

REPORT INFORMATION
  Report Type: 
  Country: None (occurrence: None)
  Receive Date: 20060731
  Receipt Date: 20060410
  Transmission Date: 20061208
  Serious: No
  Sender: FDA-Public Use
  Company Number: 2006PV011843

PATIENT
  Age: 56 Year
  Sex: Female
  Weight: 107.5025 kg

DRUGS (2)
  1. BYETTA [Suspect]
     Indication: DIABETES MELLITUS NON-INSULIN-DEPENDENT
     Dosage: 10 MCG ; 5 MCG  : BID; SC
     Route: 058
     Dates: start: 20060310, end: 20060409
  2. BYETTA [Suspect]
     Indication: DIABETES MELLITUS NON-INSULIN-DEPENDENT
     Dosage: 10 MCG ; 5 MCG  : BID; SC
     Route: 058
     Dates: start: 20060410

REACTIONS (2)
  - CONSTIPATION [None]
  - WEIGHT DECREASED [None]
